FAERS Safety Report 24415731 (Version 3)
Quarter: 2024Q4

REPORT INFORMATION
  Report Type: Spontaneous
  Country: AR (occurrence: AR)
  Receive Date: 20241009
  Receipt Date: 20241223
  Transmission Date: 20250115
  Serious: Yes (Hospitalization)
  Sender: AMGEN
  Company Number: AR-AMGEN-USASP2024199640

PATIENT
  Age: 13 Year
  Sex: Female

DRUGS (4)
  1. RAVICTI [Suspect]
     Active Substance: GLYCEROL PHENYLBUTYRATE
     Indication: Urea cycle disorder
     Dosage: 7 MILLILITER, QD
     Route: 065
     Dates: start: 202104
  2. ARGININE [Concomitant]
     Active Substance: ARGININE
     Dosage: UNK
     Route: 065
  3. CARNITINE [Concomitant]
     Active Substance: CARNITINE
     Dosage: UNK
     Route: 065
  4. SODIUM BENZOATE [Concomitant]
     Active Substance: SODIUM BENZOATE
     Dosage: UNK
     Route: 065

REACTIONS (2)
  - Hyperammonaemia [Recovered/Resolved]
  - Vomiting [Recovered/Resolved]

NARRATIVE: CASE EVENT DATE: 20240830
